FAERS Safety Report 4695071-1 (Version None)
Quarter: 2005Q2

REPORT INFORMATION
  Report Type: 
  Country: None (occurrence: None)
  Receive Date: 20050617
  Receipt Date: 20050607
  Transmission Date: 20051028
  Serious: Yes (Other)
  Sender: FDA-Public Use
  Company Number: 2005086088

PATIENT
  Age: 17 Year
  Sex: Female

DRUGS (4)
  1. NIFEDIPINE [Suspect]
     Indication: POOR PERIPHERAL CIRCULATION
     Dosage: 10 MG, ORAL; 15 MG
     Route: 048
     Dates: start: 20050501, end: 20050507
  2. NIFEDIPINE [Suspect]
     Indication: POOR PERIPHERAL CIRCULATION
     Dosage: 10 MG, ORAL; 15 MG
     Route: 048
     Dates: start: 20050508, end: 20050516
  3. VALPROATE SODIUM [Concomitant]
  4. LAMOTRIGINE [Concomitant]

REACTIONS (3)
  - FATIGUE [None]
  - MANIA [None]
  - THIRST DECREASED [None]
